FAERS Safety Report 16809744 (Version 1)
Quarter: 2019Q3

REPORT INFORMATION
  Report Type: Spontaneous
  Country: US (occurrence: US)
  Receive Date: 20190725
  Receipt Date: 20190725
  Transmission Date: 20191005
  Serious: Yes (Hospitalization)
  Sender: FDA-Public Use
  Company Number: None

PATIENT
  Age: 67 Year
  Sex: Male

DRUGS (15)
  1. DIGOXOIN [Concomitant]
  2. CLOPIDOGREL [Concomitant]
     Active Substance: CLOPIDOGREL BISULFATE
  3. FAMOTIDINE. [Concomitant]
     Active Substance: FAMOTIDINE
  4. MULTI-VITAMIN [Concomitant]
     Active Substance: .ALPHA.-TOCOPHEROL ACETATE, DL-\ASCORBIC ACID\CYANOCOBALAMIN\FLUORIDE ION\FOLIC ACID\NIACIN\PYRIDOXINE\RIBOFLAVIN\THIAMINE\VITAMIN A\VITAMIN D
  5. SPIRONOLACT [Concomitant]
     Active Substance: SPIRONOLACTONE
  6. TRANDOLAPRIL. [Concomitant]
     Active Substance: TRANDOLAPRIL
  7. LANTUS [Concomitant]
     Active Substance: INSULIN GLARGINE
  8. METFORMIN [Concomitant]
     Active Substance: METFORMIN HYDROCHLORIDE
  9. MEXILETINE [Concomitant]
     Active Substance: MEXILETINE
  10. SPIRIVA [Concomitant]
     Active Substance: TIOTROPIUM BROMIDE MONOHYDRATE
  11. PRAVASTATIN. [Concomitant]
     Active Substance: PRAVASTATIN
  12. TADALAFIL 20MG [Suspect]
     Active Substance: TADALAFIL
     Indication: PULMONARY ARTERIAL HYPERTENSION
     Dates: start: 20171014
  13. ADCIRCA [Concomitant]
     Active Substance: TADALAFIL
  14. CARVEDILOL. [Concomitant]
     Active Substance: CARVEDILOL
  15. TAMSULOSIN [Concomitant]
     Active Substance: TAMSULOSIN

REACTIONS (2)
  - Therapy cessation [None]
  - Cardiac disorder [None]
